FAERS Safety Report 5017999-5 (Version None)
Quarter: 2006Q2

REPORT INFORMATION
  Report Type: 
  Country: None (occurrence: None)
  Receive Date: 20060530
  Receipt Date: 20050318
  Transmission Date: 20061013
  Serious: Yes (Other)
  Sender: FDA-Public Use
  Company Number: 2005047340

PATIENT
  Age: 53 Year
  Sex: Male
  Weight: 100 kg

DRUGS (10)
  1. LYRICA [Suspect]
     Indication: EPILEPSY
     Dosage: 200 MG (1 IN 1 D), ORAL
     Route: 048
     Dates: start: 20040930, end: 20050316
  2. CIPRAMIL (CITALOPRAM HYDROBROMIDE) [Suspect]
     Indication: ILL-DEFINED DISORDER
     Dosage: ORAL
     Route: 048
  3. BLOPRESS (CANDESARTAN CILEXETIL) [Concomitant]
  4. CLONIDINE [Concomitant]
  5. METOPROLOL SUCCINATE [Concomitant]
  6. ALL OTHER THERAPEUTIC PRODUCTS [Concomitant]
  7. TOPAMAX [Concomitant]
  8. NEURONTIN [Concomitant]
  9. NEXIUM [Concomitant]
  10. BACLOFEN [Concomitant]

REACTIONS (13)
  - BLOOD CHOLESTEROL INCREASED [None]
  - BLOOD TRIGLYCERIDES INCREASED [None]
  - CANDIDIASIS [None]
  - DENTAL CARIES [None]
  - DYSPHAGIA [None]
  - JAW DISORDER [None]
  - PERIODONTITIS [None]
  - SALIVA ANALYSIS ABNORMAL [None]
  - SENSITIVITY OF TEETH [None]
  - STREPTOCOCCAL INFECTION [None]
  - TONGUE COATED [None]
  - TOOTH DECALCIFICATION [None]
  - TOOTH DISCOLOURATION [None]
